FAERS Safety Report 5143500-1 (Version None)
Quarter: 2006Q4

REPORT INFORMATION
  Report Type: 
  Country: None (occurrence: None)
  Receive Date: 20061103
  Receipt Date: 20061025
  Transmission Date: 20070319
  Serious: Yes (Hospitalization)
  Sender: FDA-Public Use
  Company Number: FR-GLAXOSMITHKLINE-B0444469A

PATIENT
  Age: 14 Year
  Sex: Male
  Weight: 50 kg

DRUGS (1)
  1. AUGMENTIN '125' [Suspect]
     Indication: PHARYNGOLARYNGEAL PAIN
     Dosage: 1G SINGLE DOSE
     Route: 048
     Dates: start: 20060710, end: 20060710

REACTIONS (10)
  - ABDOMINAL PAIN [None]
  - DEHYDRATION [None]
  - DEPRESSED LEVEL OF CONSCIOUSNESS [None]
  - DIARRHOEA HAEMORRHAGIC [None]
  - EXOPHTHALMOS [None]
  - HYPERSENSITIVITY [None]
  - INTESTINAL FUNCTIONAL DISORDER [None]
  - MUCOSAL DRYNESS [None]
  - PALLOR [None]
  - VOMITING [None]
